FAERS Safety Report 4449105-X (Version None)
Quarter: 2004Q3

REPORT INFORMATION
  Report Type: 
  Country: None (occurrence: None)
  Receive Date: 20040910
  Receipt Date: 20040826
  Transmission Date: 20050211
  Serious: Yes (Death, Hospitalization)
  Sender: FDA-Public Use
  Company Number: 2004-BP-02737NB

PATIENT
  Age: 81 Year
  Sex: Male

DRUGS (4)
  1. MEXITIL [Suspect]
     Indication: VENTRICULAR ARRHYTHMIA
     Dosage: 300 MG (100 MG)
     Route: 048
     Dates: start: 20040301, end: 20040301
  2. TOWARAT L (NIFEDIPINE) [Concomitant]
  3. GOSHA-JINKI-GAN (HERBAL MEDICINE) [Concomitant]
  4. SEOGRUMIN (GLIBENCLAMIDE) [Concomitant]

REACTIONS (4)
  - RESPIRATORY DISORDER [None]
  - SEPSIS [None]
  - STAPHYLOCOCCAL INFECTION [None]
  - STEVENS-JOHNSON SYNDROME [None]
